FAERS Safety Report 16491949 (Version 1)
Quarter: 2019Q2

REPORT INFORMATION
  Report Type: Spontaneous
  Country: HR (occurrence: HR)
  Receive Date: 20190628
  Receipt Date: 20190628
  Transmission Date: 20190711
  Serious: Yes (Other)
  Sender: FDA-Public Use
  Company Number: HR-ACCORD-135573

PATIENT
  Age: 45 Year
  Sex: Female

DRUGS (4)
  1. VALSARTAN. [Suspect]
     Active Substance: VALSARTAN
     Route: 048
     Dates: start: 20190329, end: 20190329
  2. POTASSIUM [Suspect]
     Active Substance: POTASSIUM
     Route: 048
     Dates: start: 20190329, end: 20190329
  3. MARTEFARIN [Suspect]
     Active Substance: WARFARIN
     Route: 048
     Dates: start: 20190329, end: 20190329
  4. ALLOPURINOL. [Suspect]
     Active Substance: ALLOPURINOL
     Route: 048
     Dates: start: 20190329, end: 20190329

REACTIONS (2)
  - Intentional overdose [Unknown]
  - Suicide attempt [Unknown]

NARRATIVE: CASE EVENT DATE: 20190329
